FAERS Safety Report 16150268 (Version 2)
Quarter: 2019Q2

REPORT INFORMATION
  Report Type: Spontaneous
  Country: US (occurrence: US)
  Receive Date: 20190403
  Receipt Date: 20190504
  Transmission Date: 20190711
  Serious: No
  Sender: FDA-Public Use
  Company Number: US-DRREDDYS-USA/USA/19/0109175

PATIENT
  Age: 34 Year
  Sex: Female
  Weight: 95.45 kg

DRUGS (1)
  1. FEXOFENADINE HCL [Suspect]
     Active Substance: FEXOFENADINE HYDROCHLORIDE
     Indication: HYPERSENSITIVITY
     Route: 048
     Dates: start: 20190320

REACTIONS (2)
  - Expired product administered [Unknown]
  - Fatigue [Unknown]

NARRATIVE: CASE EVENT DATE: 20190320
